FAERS Safety Report 4637314-6 (Version None)
Quarter: 2005Q2

REPORT INFORMATION
  Report Type: 
  Country: None (occurrence: None)
  Receive Date: 20050328
  Receipt Date: 20041124
  Transmission Date: 20051028
  Serious: No
  Sender: FDA-Public Use
  Company Number: USA041184639

PATIENT
  Age: 41 Year
  Sex: Female
  Weight: 100 kg

DRUGS (9)
  1. STRATTERA [Suspect]
     Indication: ATTENTION DEFICIT/HYPERACTIVITY DISORDER
     Dosage: 60 MG
     Dates: start: 20041101
  2. XANAX (ALPRAZOLAM DUM) [Concomitant]
  3. ACTOS [Concomitant]
  4. AVANDIA [Concomitant]
  5. GLUCOPHAGE [Concomitant]
  6. PREVACID [Concomitant]
  7. LIPITOR [Concomitant]
  8. ACCUPRIL [Concomitant]
  9. ORTHO-NOVUM [Concomitant]

REACTIONS (4)
  - BLOOD GLUCOSE DECREASED [None]
  - DIZZINESS [None]
  - DRUG INEFFECTIVE [None]
  - FALL [None]
